FAERS Safety Report 5814926-5 (Version None)
Quarter: 2008Q3

REPORT INFORMATION
  Report Type: 
  Country: None (occurrence: None)
  Receive Date: 20080718
  Receipt Date: 20080710
  Transmission Date: 20090109
  Serious: Yes (Other)
  Sender: FDA-Public Use
  Company Number: PHBS2008AU05097

PATIENT
  Age: 55 Year
  Sex: Male

DRUGS (8)
  1. NITROGLYCERIN [Suspect]
     Indication: BLOOD PRESSURE INCREASED
     Dosage: 25 MG, UNK
  2. CANDESARTAN [Suspect]
     Indication: BLOOD PRESSURE INCREASED
     Dosage: 8 MG/DAY
  3. FENTANYL [Concomitant]
     Dosage: 100 UG, UNK
  4. PROPOFOL [Concomitant]
     Dosage: 200 MG, UNK
  5. PROMETHAZINE [Concomitant]
     Dosage: 10 TO 25 MG
  6. MORPHINE [Concomitant]
     Dosage: 10 MG, UNK
  7. OXYCODONE HCL [Concomitant]
  8. ACETAMINOPHEN W/ CODEINE [Concomitant]
     Dosage: UNK

REACTIONS (13)
  - AORTIC DILATATION [None]
  - BLINDNESS [None]
  - BLOOD PRESSURE INCREASED [None]
  - COMPUTERISED TOMOGRAM ABNORMAL [None]
  - CONVULSION [None]
  - HEADACHE [None]
  - LEFT VENTRICULAR HYPERTROPHY [None]
  - NAUSEA [None]
  - NUCLEAR MAGNETIC RESONANCE IMAGING ABNORMAL [None]
  - PULSE ABNORMAL [None]
  - REVERSIBLE POSTERIOR LEUKOENCEPHALOPATHY SYNDROME [None]
  - VISION BLURRED [None]
  - VOMITING [None]
